FAERS Safety Report 10359361 (Version 1)
Quarter: 2014Q3

REPORT INFORMATION
  Report Type: Spontaneous
  Country: CH (occurrence: CH)
  Receive Date: 20140804
  Receipt Date: 20140804
  Transmission Date: 20150326
  Serious: Yes (Hospitalization)
  Sender: FDA-Public Use
  Company Number: CH-JNJFOC-20140714339

PATIENT
  Age: 91 Year
  Sex: Male
  Weight: 70 kg

DRUGS (22)
  1. ZINACEF [Concomitant]
     Active Substance: CEFUROXIME SODIUM
     Indication: PROPHYLACTIC CHEMOTHERAPY
     Route: 040
     Dates: start: 20140709, end: 20140709
  2. HALDOL [Suspect]
     Active Substance: HALOPERIDOL
     Indication: ANAESTHETIC COMPLICATION NEUROLOGICAL
     Dosage: 8.5 MG TOTAL
     Route: 042
     Dates: start: 20140709, end: 20140710
  3. ASPIRIN. [Concomitant]
     Active Substance: ASPIRIN
     Indication: PERIPHERAL ARTERIAL OCCLUSIVE DISEASE
     Route: 048
  4. DISOPRIVAN [Concomitant]
     Active Substance: PROPOFOL
     Indication: ANAESTHESIA
     Route: 041
     Dates: start: 20140709, end: 20140709
  5. EPHEDRINE [Concomitant]
     Active Substance: EPHEDRINE
     Indication: HYPOTENSION
     Route: 040
     Dates: start: 20140709, end: 20140709
  6. NOREPINEPHRINE [Concomitant]
     Active Substance: NOREPINEPHRINE\NOREPINEPHRINE BITARTRATE
     Indication: HYPOTENSION
     Route: 040
     Dates: start: 20140709, end: 20140709
  7. SIMCORA [Concomitant]
     Active Substance: SIMVASTATIN
     Indication: HYPERLIPIDAEMIA
     Route: 048
  8. CALCIUM/D3 [Concomitant]
     Active Substance: CALCIUM\CHOLECALCIFEROL
     Indication: OSTEOPOROSIS
     Route: 048
  9. ATRACURIUM [Concomitant]
     Active Substance: ATRACURIUM
     Indication: ANAESTHESIA
     Route: 040
     Dates: start: 20140709, end: 20140709
  10. DAFALGAN [Concomitant]
     Active Substance: ACETAMINOPHEN
     Indication: PAIN
     Route: 048
  11. HEPARIN [Concomitant]
     Active Substance: HEPARIN SODIUM
     Indication: PROPHYLACTIC CHEMOTHERAPY
     Route: 041
     Dates: start: 20140709
  12. MORPHINE [Suspect]
     Active Substance: MORPHINE
     Indication: PAIN
     Route: 042
     Dates: start: 20140709, end: 20140709
  13. BUPRENORPHINE HYDROCHLORIDE. [Suspect]
     Active Substance: BUPRENORPHINE HYDROCHLORIDE
     Indication: PAIN
     Route: 042
     Dates: start: 20140709
  14. PHENYLEPHRINE [Concomitant]
     Active Substance: PHENYLEPHRINE\PHENYLEPHRINE HYDROCHLORIDE
     Indication: HYPOTENSION
     Route: 040
     Dates: start: 20140709, end: 20140709
  15. NITROGLYCERINE [Concomitant]
     Active Substance: NITROGLYCERIN
     Indication: PROCEDURAL HYPERTENSION
     Route: 065
     Dates: start: 20140709, end: 20140709
  16. FENTANYL. [Concomitant]
     Active Substance: FENTANYL
     Indication: ANAESTHESIA
     Route: 040
     Dates: start: 20140709, end: 20140709
  17. ESMOLOL [Concomitant]
     Active Substance: ESMOLOL HYDROCHLORIDE
     Indication: PROCEDURAL HYPERTENSION
     Route: 041
     Dates: start: 20140709, end: 20140709
  18. LASIX [Concomitant]
     Active Substance: FUROSEMIDE
     Indication: ACUTE PULMONARY OEDEMA
     Route: 040
  19. TRAMAL [Concomitant]
     Active Substance: TRAMADOL
     Indication: PAIN
     Route: 048
     Dates: start: 20140709
  20. IMPORTAL [Concomitant]
     Active Substance: LACTITOL
     Indication: CONSTIPATION
     Route: 048
  21. ISOKET [Concomitant]
     Active Substance: ISOSORBIDE DINITRATE
     Indication: PROCEDURAL HYPERTENSION
     Route: 055
     Dates: start: 20140709, end: 20140709
  22. TORASEMIDE [Concomitant]
     Active Substance: TORSEMIDE
     Indication: CARDIAC FAILURE
     Route: 040
     Dates: start: 20140710

REACTIONS (8)
  - Agitation postoperative [Recovering/Resolving]
  - Drug prescribing error [Unknown]
  - Anaesthetic complication neurological [Recovering/Resolving]
  - Myocardial infarction [Unknown]
  - Muscle rigidity [Recovering/Resolving]
  - Acute pulmonary oedema [Unknown]
  - Off label use [Unknown]
  - Aggression [Recovering/Resolving]

NARRATIVE: CASE EVENT DATE: 20140709
